FAERS Safety Report 8056638-6 (Version None)
Quarter: 2012Q1

REPORT INFORMATION
  Report Type: 
  Country: None (occurrence: None)
  Receive Date: 20120119
  Receipt Date: 20120111
  Transmission Date: 20120608
  Serious: Yes (Other)
  Sender: FDA-Public Use
  Company Number: CHPA2012US000998

PATIENT
  Age: 75 Year
  Sex: Male

DRUGS (1)
  1. EXCEDRIN EXTRA STRENGTH CAPLETS [Suspect]
     Indication: PAIN
     Dosage: UNK DF, UNK
     Route: 048
     Dates: start: 20120102

REACTIONS (5)
  - FALL [None]
  - DIZZINESS [None]
  - DRUG INEFFECTIVE [None]
  - CONTUSION [None]
  - DYSPNOEA [None]
